FAERS Safety Report 10925737 (Version 1)
Quarter: 2015Q1

REPORT INFORMATION
  Report Type: Spontaneous
  Country: US (occurrence: None)
  Receive Date: 20150316
  Receipt Date: 20150316
  Transmission Date: 20150721
  Serious: No
  Sender: FDA-Public Use
  Company Number: None

PATIENT
  Age: 37 Year
  Sex: Female
  Weight: 70.31 kg

DRUGS (4)
  1. CALCIUM [Concomitant]
     Active Substance: CALCIUM
  2. FLAXSEED [Concomitant]
     Active Substance: FLAX SEED
  3. VITAMIN D [Concomitant]
     Active Substance: CHOLECALCIFEROL
  4. AMPHETAMINE SALTS [Suspect]
     Active Substance: AMPHETAMINE ASPARTATE\AMPHETAMINE SULFATE\DEXTROAMPHETAMINE SACCHARATE\DEXTROAMPHETAMINE SULFATE
     Indication: ATTENTION DEFICIT/HYPERACTIVITY DISORDER
     Dosage: 1 PILL TWICE DAILY TAKEN BY MOUTH
     Route: 048
     Dates: start: 20150310, end: 20150311

REACTIONS (16)
  - Chest discomfort [None]
  - Asthenia [None]
  - Photosensitivity reaction [None]
  - Hearing impaired [None]
  - Skin discolouration [None]
  - Somnolence [None]
  - Pain [None]
  - Tinnitus [None]
  - Headache [None]
  - Feeling abnormal [None]
  - Ocular discomfort [None]
  - Throat tightness [None]
  - Abdominal pain [None]
  - Product substitution issue [None]
  - Vision blurred [None]
  - Hypoaesthesia [None]

NARRATIVE: CASE EVENT DATE: 20150310
